FAERS Safety Report 9627140 (Version 2)
Quarter: 2013Q4

REPORT INFORMATION
  Report Type: Report from Study
  Country: US (occurrence: US)
  Receive Date: 20131016
  Receipt Date: 20131016
  Transmission Date: 20140711
  Serious: Yes (Other)
  Sender: FDA-Public Use
  Company Number: PHEH2013US018239

PATIENT
  Sex: Male
  Weight: 97 kg

DRUGS (2)
  1. GLEEVEC [Suspect]
     Indication: GASTROINTESTINAL STROMAL TUMOUR
     Dosage: 400 MG, QD
     Route: 048
  2. GLEEVEC [Suspect]
     Dosage: 400 MG, DAILY
     Route: 048

REACTIONS (6)
  - Pelvic mass [Unknown]
  - Nodule [Unknown]
  - Metastases to liver [Unknown]
  - Lymphadenopathy [Unknown]
  - Arthralgia [Unknown]
  - Liver function test abnormal [Unknown]
